FAERS Safety Report 8809994 (Version 2)
Quarter: 2012Q4

REPORT INFORMATION
  Report Type: Report from Study
  Country: FR (occurrence: FR)
  Receive Date: 20120926
  Receipt Date: 20121106
  Transmission Date: 20130627
  Serious: Yes (Other)
  Sender: FDA-Public Use
  Company Number: FR-CELGENEUS-056-21880-12091949

PATIENT
  Age: 62 Year
  Sex: Female

DRUGS (13)
  1. REVLIMID [Suspect]
     Indication: MYELOMA
     Dosage: 25 Milligram
     Route: 048
     Dates: start: 20120105
  2. REVLIMID [Suspect]
     Route: 048
     Dates: end: 20120812
  3. REVLIMID [Suspect]
     Route: 048
     Dates: start: 20121008
  4. BORTEZOMIB [Suspect]
     Indication: MYELOMA
     Route: 065
     Dates: start: 20120105
  5. BORTEZOMIB [Suspect]
     Route: 065
     Dates: start: 2012, end: 20120902
  6. DEXAMETHASONE [Suspect]
     Indication: MYELOMA
     Route: 065
     Dates: start: 20120105
  7. DEXAMETHASONE [Suspect]
     Route: 065
     Dates: start: 2012, end: 20120902
  8. ROVAMYCINE [Concomitant]
     Indication: PROPHYLAXIS
     Dosage: 2 Capsule
     Route: 048
     Dates: start: 20120214
  9. VALACICLOVIR [Concomitant]
     Indication: PROPHYLAXIS
     Dosage: 1 Gram
     Route: 048
     Dates: start: 20120214
  10. EPREX [Concomitant]
     Indication: ANEMIA
     Dosage: 2857.1429 IU (International Unit)
     Route: 058
     Dates: start: 20120723
  11. LEVOTHYROX [Concomitant]
     Indication: THYROID NODULE
     Dosage: 25 Microgram
     Route: 048
  12. PENTACARINAT [Concomitant]
     Indication: PROPHYLAXIS
     Route: 065
     Dates: start: 20120217
  13. ZOMETA [Concomitant]
     Indication: DRUG USE FOR UNKNOWN INDICATION
     Dosage: 4 Milligram
     Route: 058
     Dates: start: 20120730

REACTIONS (1)
  - Basal cell carcinoma [Unknown]
